FAERS Safety Report 15157654 (Version 1)
Quarter: 2018Q3

REPORT INFORMATION
  Report Type: Spontaneous
  Country: US (occurrence: US)
  Receive Date: 20180718
  Receipt Date: 20180718
  Transmission Date: 20181010
  Serious: No
  Sender: FDA-Public Use
  Company Number: US-TEVA-2018-US-928490

PATIENT
  Sex: Female

DRUGS (2)
  1. DULOXETINE. [Suspect]
     Active Substance: DULOXETINE
     Indication: ABDOMINAL DISCOMFORT
     Route: 065
     Dates: start: 201802
  2. DULOXETINE. [Suspect]
     Active Substance: DULOXETINE
     Indication: ABDOMINAL PAIN

REACTIONS (1)
  - Drug ineffective for unapproved indication [Unknown]
